FAERS Safety Report 5152073-9 (Version None)
Quarter: 2006Q4

REPORT INFORMATION
  Report Type: 
  Country: None (occurrence: None)
  Receive Date: 20061116
  Receipt Date: 20061109
  Transmission Date: 20070319
  Serious: Yes (Disabling, Other)
  Sender: FDA-Public Use
  Company Number: US-PURDUE-USA_2006_0025690

PATIENT
  Sex: Male

DRUGS (3)
  1. OXYCONTIN [Suspect]
     Indication: DRUG ABUSER
     Dosage: UNK, UNK
  2. ALCOHOL [Suspect]
     Indication: ALCOHOL POISONING
     Dosage: UNK, UNK
  3. MARIJUANA [Suspect]
     Indication: DRUG ABUSER
     Dosage: UNK, UNK

REACTIONS (4)
  - ALCOHOL POISONING [None]
  - HOMICIDE [None]
  - SUBSTANCE ABUSE [None]
  - THEFT [None]
